FAERS Safety Report 7958743-9 (Version None)
Quarter: 2011Q4

REPORT INFORMATION
  Report Type: 
  Country: None (occurrence: None)
  Receive Date: 20111206
  Receipt Date: 20111125
  Transmission Date: 20120403
  Serious: Yes (Other)
  Sender: FDA-Public Use
  Company Number: JP-JNJFOC-20110706546

PATIENT
  Sex: Male
  Weight: 64 kg

DRUGS (4)
  1. REMICADE [Suspect]
     Route: 042
     Dates: start: 20101211
  2. REMICADE [Suspect]
     Indication: CROHN'S DISEASE
     Route: 042
     Dates: start: 20101125
  3. REMICADE [Suspect]
     Dosage: TOTAL 3 DOSES
     Route: 042
     Dates: start: 20110111
  4. PENTASA [Concomitant]
     Indication: CROHN'S DISEASE
     Route: 048
     Dates: end: 20110219

REACTIONS (2)
  - TUBERCULOUS PLEURISY [None]
  - PULMONARY TUBERCULOSIS [None]
